FAERS Safety Report 12599348 (Version 33)
Quarter: 2019Q3

REPORT INFORMATION
  Report Type: Spontaneous
  Country: TW (occurrence: TW)
  Receive Date: 20160727
  Receipt Date: 20190716
  Transmission Date: 20191004
  Serious: Yes (Death, Hospitalization, Other)
  Sender: FDA-Public Use
  Company Number: TW-PFIZER INC-2015330166

PATIENT
  Age: 73 Year
  Sex: Male

DRUGS (9)
  1. INLYTA [Suspect]
     Active Substance: AXITINIB
     Indication: RENAL CELL CARCINOMA
     Dosage: 10 MG, DAILY
     Route: 048
     Dates: start: 20150919, end: 20150925
  2. INLYTA [Suspect]
     Active Substance: AXITINIB
     Dosage: 10 MG, DAILY
     Route: 048
     Dates: start: 20170722
  3. INLYTA [Suspect]
     Active Substance: AXITINIB
     Dosage: 6 MG, DAILY
     Route: 048
     Dates: start: 20170802
  4. INLYTA [Suspect]
     Active Substance: AXITINIB
     Dosage: 4 MG, 1X/DAY
     Route: 048
     Dates: start: 20151116
  5. INLYTA [Suspect]
     Active Substance: AXITINIB
     Dosage: 10 MG, DAILY
     Route: 048
     Dates: start: 20171006
  6. INLYTA [Suspect]
     Active Substance: AXITINIB
     Dosage: 2 MG, CYCLIC (DAILY, 2 WEEKS ON AND 1 WEEK OFF)
     Route: 048
     Dates: start: 20160122
  7. INLYTA [Suspect]
     Active Substance: AXITINIB
     Dosage: 5 MG, DAILY
     Route: 048
     Dates: start: 20151001, end: 20151016
  8. INLYTA [Suspect]
     Active Substance: AXITINIB
     Dosage: 12 MG, DAILY
     Route: 048
     Dates: start: 20180103
  9. INLYTA [Suspect]
     Active Substance: AXITINIB
     Dosage: 14 MG, DAILY
     Route: 048
     Dates: start: 20180718, end: 201903

REACTIONS (29)
  - Myalgia [Not Recovered/Not Resolved]
  - Decreased appetite [Not Recovered/Not Resolved]
  - Parkinson^s disease [Not Recovered/Not Resolved]
  - Hyperuricaemia [Recovered/Resolved]
  - Fatigue [Recovered/Resolved]
  - Asthenia [Not Recovered/Not Resolved]
  - Hypertension [Recovered/Resolved]
  - Arthralgia [Not Recovered/Not Resolved]
  - Proteinuria [Recovered/Resolved]
  - Anaemia [Recovered/Resolved]
  - Muscular weakness [Not Recovered/Not Resolved]
  - Cough [Not Recovered/Not Resolved]
  - Blood cholesterol increased [Recovered/Resolved]
  - Stomatitis [Recovered/Resolved]
  - Neoplasm progression [Fatal]
  - Blood urea increased [Recovered/Resolved]
  - Musculoskeletal stiffness [Not Recovered/Not Resolved]
  - Aphonia [Recovered/Resolved]
  - Gastroenteritis [Recovered/Resolved]
  - Haematuria [Recovered/Resolved]
  - Intentional product use issue [Unknown]
  - Blood alkaline phosphatase increased [Recovered/Resolved]
  - Haemorrhoidal haemorrhage [Recovered/Resolved]
  - Gait disturbance [Not Recovered/Not Resolved]
  - Constipation [Recovered/Resolved]
  - Toothache [Not Recovered/Not Resolved]
  - Asthma [Recovered/Resolved]
  - Blood lactate dehydrogenase increased [Recovered/Resolved]
  - Diarrhoea [Recovered/Resolved]

NARRATIVE: CASE EVENT DATE: 2015
